FAERS Safety Report 25493434 (Version 1)
Quarter: 2025Q2

REPORT INFORMATION
  Report Type: Spontaneous
  Country: ES (occurrence: ES)
  Receive Date: 20250630
  Receipt Date: 20250630
  Transmission Date: 20250716
  Serious: Yes (Hospitalization)
  Sender: MYLAN
  Company Number: None

PATIENT
  Age: 64 Year
  Sex: Female

DRUGS (48)
  1. EVEROLIMUS [Interacting]
     Active Substance: EVEROLIMUS
     Indication: Breast cancer
     Dates: start: 20241129
  2. EVEROLIMUS [Interacting]
     Active Substance: EVEROLIMUS
     Route: 048
     Dates: start: 20241129
  3. EVEROLIMUS [Interacting]
     Active Substance: EVEROLIMUS
     Route: 048
     Dates: start: 20241129
  4. EVEROLIMUS [Interacting]
     Active Substance: EVEROLIMUS
     Dates: start: 20241129
  5. LISINOPRIL AND HYDROCHLOROTHIAZIDE [Interacting]
     Active Substance: HYDROCHLOROTHIAZIDE\LISINOPRIL
     Indication: Hypertension
     Dosage: 1 DOSAGE FORM, QD(28 TABLETS)
     Dates: start: 20131024, end: 20250303
  6. LISINOPRIL AND HYDROCHLOROTHIAZIDE [Interacting]
     Active Substance: HYDROCHLOROTHIAZIDE\LISINOPRIL
     Dosage: 1 DOSAGE FORM, QD(28 TABLETS)
     Route: 048
     Dates: start: 20131024, end: 20250303
  7. LISINOPRIL AND HYDROCHLOROTHIAZIDE [Interacting]
     Active Substance: HYDROCHLOROTHIAZIDE\LISINOPRIL
     Dosage: 1 DOSAGE FORM, QD(28 TABLETS)
     Route: 048
     Dates: start: 20131024, end: 20250303
  8. LISINOPRIL AND HYDROCHLOROTHIAZIDE [Interacting]
     Active Substance: HYDROCHLOROTHIAZIDE\LISINOPRIL
     Dosage: 1 DOSAGE FORM, QD(28 TABLETS)
     Dates: start: 20131024, end: 20250303
  9. Pantoprazol Cinfa [Concomitant]
     Dosage: 40 MILLIGRAM, QD (28 TABLETS )
     Dates: start: 20210223
  10. Pantoprazol Cinfa [Concomitant]
     Dosage: 40 MILLIGRAM, QD (28 TABLETS )
     Route: 048
     Dates: start: 20210223
  11. Pantoprazol Cinfa [Concomitant]
     Dosage: 40 MILLIGRAM, QD (28 TABLETS )
     Route: 048
     Dates: start: 20210223
  12. Pantoprazol Cinfa [Concomitant]
     Dosage: 40 MILLIGRAM, QD (28 TABLETS )
     Dates: start: 20210223
  13. INSULIN HUMAN [Concomitant]
     Active Substance: INSULIN HUMAN
     Dosage: 14 INTERNATIONAL UNIT, QD (SUSPENSION FOR INJECTION IN PRE-FILLED PEN 5 PRE-FILLED PENS OF 3 ML)
     Dates: start: 20250205
  14. INSULIN HUMAN [Concomitant]
     Active Substance: INSULIN HUMAN
     Dosage: 14 INTERNATIONAL UNIT, QD (SUSPENSION FOR INJECTION IN PRE-FILLED PEN 5 PRE-FILLED PENS OF 3 ML)
     Route: 057
     Dates: start: 20250205
  15. INSULIN HUMAN [Concomitant]
     Active Substance: INSULIN HUMAN
     Dosage: 14 INTERNATIONAL UNIT, QD (SUSPENSION FOR INJECTION IN PRE-FILLED PEN 5 PRE-FILLED PENS OF 3 ML)
     Route: 057
     Dates: start: 20250205
  16. INSULIN HUMAN [Concomitant]
     Active Substance: INSULIN HUMAN
     Dosage: 14 INTERNATIONAL UNIT, QD (SUSPENSION FOR INJECTION IN PRE-FILLED PEN 5 PRE-FILLED PENS OF 3 ML)
     Dates: start: 20250205
  17. PREDNISONE [Concomitant]
     Active Substance: PREDNISONE
     Dosage: 2.5 MILLIGRAM, QD (30 TABLETS)
     Dates: start: 20240910
  18. PREDNISONE [Concomitant]
     Active Substance: PREDNISONE
     Dosage: 2.5 MILLIGRAM, QD (30 TABLETS)
     Route: 048
     Dates: start: 20240910
  19. PREDNISONE [Concomitant]
     Active Substance: PREDNISONE
     Dosage: 2.5 MILLIGRAM, QD (30 TABLETS)
     Route: 048
     Dates: start: 20240910
  20. PREDNISONE [Concomitant]
     Active Substance: PREDNISONE
     Dosage: 2.5 MILLIGRAM, QD (30 TABLETS)
     Dates: start: 20240910
  21. SULPIRIDE [Concomitant]
     Active Substance: SULPIRIDE
     Dosage: 50 MILLIGRAM, QD (30 CAPSULES)
     Dates: start: 20250225
  22. SULPIRIDE [Concomitant]
     Active Substance: SULPIRIDE
     Dosage: 50 MILLIGRAM, QD (30 CAPSULES)
     Route: 048
     Dates: start: 20250225
  23. SULPIRIDE [Concomitant]
     Active Substance: SULPIRIDE
     Dosage: 50 MILLIGRAM, QD (30 CAPSULES)
     Route: 048
     Dates: start: 20250225
  24. SULPIRIDE [Concomitant]
     Active Substance: SULPIRIDE
     Dosage: 50 MILLIGRAM, QD (30 CAPSULES)
     Dates: start: 20250225
  25. FLUOXETINE HYDROCHLORIDE [Concomitant]
     Active Substance: FLUOXETINE HYDROCHLORIDE
     Dosage: 20 MILLIGRAM, QD (28 CAPSULES)
     Dates: start: 20150618
  26. FLUOXETINE HYDROCHLORIDE [Concomitant]
     Active Substance: FLUOXETINE HYDROCHLORIDE
     Dosage: 20 MILLIGRAM, QD (28 CAPSULES)
     Route: 048
     Dates: start: 20150618
  27. FLUOXETINE HYDROCHLORIDE [Concomitant]
     Active Substance: FLUOXETINE HYDROCHLORIDE
     Dosage: 20 MILLIGRAM, QD (28 CAPSULES)
     Route: 048
     Dates: start: 20150618
  28. FLUOXETINE HYDROCHLORIDE [Concomitant]
     Active Substance: FLUOXETINE HYDROCHLORIDE
     Dosage: 20 MILLIGRAM, QD (28 CAPSULES)
     Dates: start: 20150618
  29. FLUTICASONE FUROATE [Concomitant]
     Active Substance: FLUTICASONE FUROATE
     Dosage: 110 MICROGRAM, QD (1 BOTTLE OF 120 SPRAYS)
     Dates: start: 20210322
  30. FLUTICASONE FUROATE [Concomitant]
     Active Substance: FLUTICASONE FUROATE
     Dosage: 110 MICROGRAM, QD (1 BOTTLE OF 120 SPRAYS)
     Route: 045
     Dates: start: 20210322
  31. FLUTICASONE FUROATE [Concomitant]
     Active Substance: FLUTICASONE FUROATE
     Dosage: 110 MICROGRAM, QD (1 BOTTLE OF 120 SPRAYS)
     Route: 045
     Dates: start: 20210322
  32. FLUTICASONE FUROATE [Concomitant]
     Active Substance: FLUTICASONE FUROATE
     Dosage: 110 MICROGRAM, QD (1 BOTTLE OF 120 SPRAYS)
     Dates: start: 20210322
  33. TRELEGY ELLIPTA [Concomitant]
     Active Substance: FLUTICASONE FUROATE\UMECLIDINIUM BROMIDE\VILANTEROL TRIFENATATE
     Dosage: 1 DOSAGE FORM, QD ((SINGLE DOSE), 1 INHALER OF 30 DOSES)
     Dates: start: 20221230
  34. TRELEGY ELLIPTA [Concomitant]
     Active Substance: FLUTICASONE FUROATE\UMECLIDINIUM BROMIDE\VILANTEROL TRIFENATATE
     Dosage: 1 DOSAGE FORM, QD ((SINGLE DOSE), 1 INHALER OF 30 DOSES)
     Route: 055
     Dates: start: 20221230
  35. TRELEGY ELLIPTA [Concomitant]
     Active Substance: FLUTICASONE FUROATE\UMECLIDINIUM BROMIDE\VILANTEROL TRIFENATATE
     Dosage: 1 DOSAGE FORM, QD ((SINGLE DOSE), 1 INHALER OF 30 DOSES)
     Route: 055
     Dates: start: 20221230
  36. TRELEGY ELLIPTA [Concomitant]
     Active Substance: FLUTICASONE FUROATE\UMECLIDINIUM BROMIDE\VILANTEROL TRIFENATATE
     Dosage: 1 DOSAGE FORM, QD ((SINGLE DOSE), 1 INHALER OF 30 DOSES)
     Dates: start: 20221230
  37. MONTELUKAST SODIUM [Concomitant]
     Active Substance: MONTELUKAST SODIUM
     Dosage: 10 MILLIGRAM, QD (28 TABLETS)
     Dates: start: 20120820
  38. MONTELUKAST SODIUM [Concomitant]
     Active Substance: MONTELUKAST SODIUM
     Dosage: 10 MILLIGRAM, QD (28 TABLETS)
     Route: 048
     Dates: start: 20120820
  39. MONTELUKAST SODIUM [Concomitant]
     Active Substance: MONTELUKAST SODIUM
     Dosage: 10 MILLIGRAM, QD (28 TABLETS)
     Route: 048
     Dates: start: 20120820
  40. MONTELUKAST SODIUM [Concomitant]
     Active Substance: MONTELUKAST SODIUM
     Dosage: 10 MILLIGRAM, QD (28 TABLETS)
     Dates: start: 20120820
  41. LORAZEPAM [Concomitant]
     Active Substance: LORAZEPAM
     Dosage: 1 MILLIGRAM, QD
  42. LORAZEPAM [Concomitant]
     Active Substance: LORAZEPAM
     Dosage: 1 MILLIGRAM, QD
     Route: 048
  43. LORAZEPAM [Concomitant]
     Active Substance: LORAZEPAM
     Dosage: 1 MILLIGRAM, QD
     Route: 048
  44. LORAZEPAM [Concomitant]
     Active Substance: LORAZEPAM
     Dosage: 1 MILLIGRAM, QD
  45. FULVESTRANT [Concomitant]
     Active Substance: FULVESTRANT
     Indication: Breast cancer
     Dosage: 500 MILLIGRAM, MONTHLY (2 PRE-FILLED SYRINGES OF 5 ML + 2 NEEDLES)
     Dates: start: 20250130
  46. FULVESTRANT [Concomitant]
     Active Substance: FULVESTRANT
     Dosage: 500 MILLIGRAM, MONTHLY (2 PRE-FILLED SYRINGES OF 5 ML + 2 NEEDLES)
     Route: 030
     Dates: start: 20250130
  47. FULVESTRANT [Concomitant]
     Active Substance: FULVESTRANT
     Dosage: 500 MILLIGRAM, MONTHLY (2 PRE-FILLED SYRINGES OF 5 ML + 2 NEEDLES)
     Route: 030
     Dates: start: 20250130
  48. FULVESTRANT [Concomitant]
     Active Substance: FULVESTRANT
     Dosage: 500 MILLIGRAM, MONTHLY (2 PRE-FILLED SYRINGES OF 5 ML + 2 NEEDLES)
     Dates: start: 20250130

REACTIONS (2)
  - Angioedema [Recovered/Resolved]
  - Drug interaction [Unknown]

NARRATIVE: CASE EVENT DATE: 20250303
